FAERS Safety Report 7685696-3 (Version None)
Quarter: 2011Q3

REPORT INFORMATION
  Report Type: 
  Country: None (occurrence: None)
  Receive Date: 20110816
  Receipt Date: 20110805
  Transmission Date: 20111222
  Serious: Yes (Death, Hospitalization)
  Sender: FDA-Public Use
  Company Number: JP-ASTRAZENECA-2011SE45250

PATIENT
  Age: 84 Year
  Sex: Male

DRUGS (13)
  1. KALIMATE [Concomitant]
     Route: 048
     Dates: start: 20110308
  2. MUCODYNE [Concomitant]
     Route: 048
     Dates: start: 20110214
  3. GRAMALIL [Concomitant]
     Route: 048
     Dates: start: 20110303
  4. LENDORMIN [Concomitant]
     Route: 048
     Dates: start: 20110220
  5. CIPROFLOXACIN HCL [Concomitant]
     Route: 048
     Dates: start: 20110307, end: 20110309
  6. DIGOXIN [Concomitant]
     Route: 048
     Dates: start: 20110215
  7. YOKU-KAN-SAN [Concomitant]
     Route: 048
     Dates: start: 20110304
  8. SUNRYTHM [Concomitant]
     Route: 048
     Dates: start: 20110215
  9. ASPIRIN [Concomitant]
     Route: 048
     Dates: start: 20110215
  10. CLEANAL [Concomitant]
     Route: 048
     Dates: start: 20110219
  11. LASIX [Concomitant]
     Route: 048
     Dates: start: 20110307
  12. MEROPENEM [Suspect]
     Indication: PNEUMONIA
     Route: 042
     Dates: start: 20110307, end: 20110309
  13. ENTOMOL [Concomitant]
     Route: 048
     Dates: start: 20110216

REACTIONS (2)
  - PNEUMONIA [None]
  - HYPERKALAEMIA [None]
